FAERS Safety Report 7341584-3 (Version None)
Quarter: 2011Q1

REPORT INFORMATION
  Report Type: 
  Country: None (occurrence: None)
  Receive Date: 20110309
  Receipt Date: 20110304
  Transmission Date: 20110831
  Serious: Yes (Hospitalization, Disabling, Other)
  Sender: FDA-Public Use
  Company Number: US-PFIZER INC-2009260197

PATIENT
  Sex: Male

DRUGS (3)
  1. EFFEXOR [Concomitant]
     Indication: BIPOLAR DISORDER
     Dosage: UNK
     Dates: start: 19990101, end: 20090101
  2. ELAVIL [Concomitant]
     Indication: BIPOLAR DISORDER
     Dosage: UNK
     Dates: start: 19920101
  3. CHANTIX [Suspect]
     Indication: SMOKING CESSATION THERAPY
     Dosage: ONE STARTER MONTH PACK AND TWO REFILLS
     Dates: start: 20070401

REACTIONS (12)
  - SUICIDE ATTEMPT [None]
  - DEPRESSED LEVEL OF CONSCIOUSNESS [None]
  - MUSCLE SPASMS [None]
  - CONVULSION [None]
  - INTENTIONAL OVERDOSE [None]
  - DIZZINESS [None]
  - SPEECH DISORDER [None]
  - BIPOLAR DISORDER [None]
  - DEPRESSION [None]
  - AMNESIA [None]
  - ANXIETY [None]
  - MENTAL DISORDER [None]
